FAERS Safety Report 10892877 (Version 2)
Quarter: 2015Q2

REPORT INFORMATION
  Report Type: Spontaneous
  Country: US (occurrence: US)
  Receive Date: 20150306
  Receipt Date: 20150415
  Transmission Date: 20150821
  Serious: Yes (Hospitalization)
  Sender: FDA-Public Use
  Company Number: US-BAYER-2015-030857

PATIENT
  Age: 75 Year
  Sex: Female
  Weight: 59.86 kg

DRUGS (3)
  1. STIVARGA [Suspect]
     Active Substance: REGORAFENIB
     Indication: COLON CANCER
     Dosage: 160 MG, QD
     Route: 048
     Dates: start: 20140831, end: 20140909
  2. OMEPRAZOLE. [Concomitant]
     Active Substance: OMEPRAZOLE
     Indication: GASTROOESOPHAGEAL REFLUX DISEASE
     Dosage: DAILY DOSE 20 MG
  3. CALCIUM W/VITAMIN D NOS [Concomitant]
     Active Substance: CALCIUM\VITAMIN D
     Indication: OSTEOPENIA
     Dosage: UNK

REACTIONS (8)
  - Abasia [None]
  - Balance disorder [None]
  - Asthenia [None]
  - Dysstasia [None]
  - Dizziness [None]
  - Decreased appetite [None]
  - Incoherent [None]
  - Fatigue [None]

NARRATIVE: CASE EVENT DATE: 20140831
